FAERS Safety Report 7931504-2 (Version None)
Quarter: 2011Q4

REPORT INFORMATION
  Report Type: 
  Country: None (occurrence: None)
  Receive Date: 20111121
  Receipt Date: 20111121
  Transmission Date: 20120403
  Serious: No
  Sender: FDA-Public Use
  Company Number: None

PATIENT
  Age: 53 Year
  Sex: Female
  Weight: 58.967 kg

DRUGS (1)
  1. CVS MULTIPLE TABLETS FOR WOMEN [Suspect]
     Indication: MINERAL SUPPLEMENTATION
     Dosage: 1
     Route: 048
     Dates: start: 20110308, end: 20111113

REACTIONS (1)
  - CONSTIPATION [None]
